FAERS Safety Report 23783786 (Version 1)
Quarter: 2024Q2

REPORT INFORMATION
  Report Type: Spontaneous
  Country: US (occurrence: US)
  Receive Date: 20240425
  Receipt Date: 20240425
  Transmission Date: 20240716
  Serious: No
  Sender: FDA-Public Use
  Company Number: US-002147023-NVSC2024US088095

PATIENT
  Age: 68 Year
  Sex: Male

DRUGS (1)
  1. LEQVIO [Suspect]
     Active Substance: INCLISIRAN SODIUM
     Indication: Low density lipoprotein
     Dosage: 284 MG (12.8.23 AND DOSE #2 ON 3.22.24. )
     Route: 058
     Dates: start: 202312

REACTIONS (3)
  - Dizziness [Recovering/Resolving]
  - Psoriasis [Recovering/Resolving]
  - Pain [Recovering/Resolving]

NARRATIVE: CASE EVENT DATE: 20240329
